FAERS Safety Report 24701621 (Version 1)
Quarter: 2024Q4

REPORT INFORMATION
  Report Type: Spontaneous
  Country: FR (occurrence: FR)
  Receive Date: 20241205
  Receipt Date: 20241205
  Transmission Date: 20250115
  Serious: Yes (Hospitalization)
  Sender: TEVA
  Company Number: None

PATIENT
  Age: 76 Year
  Sex: Male

DRUGS (2)
  1. LEVOFLOXACIN [Suspect]
     Active Substance: LEVOFLOXACIN
     Indication: Staphylococcal infection
     Dosage: 1 TABLET OF 750 MG/DAY
     Route: 048
     Dates: start: 20241003, end: 20241029
  2. RIFAMPIN [Suspect]
     Active Substance: RIFAMPIN
     Indication: Staphylococcal infection
     Route: 048
     Dates: start: 20241003, end: 20241029

REACTIONS (2)
  - Hepatic cytolysis [Recovering/Resolving]
  - Eosinophilia [Recovering/Resolving]

NARRATIVE: CASE EVENT DATE: 20241015
